FAERS Safety Report 18163264 (Version 1)
Quarter: 2020Q3

REPORT INFORMATION
  Report Type: Spontaneous
  Country: US (occurrence: US)
  Receive Date: 20200818
  Receipt Date: 20200818
  Transmission Date: 20201103
  Serious: No
  Sender: FDA-Public Use
  Company Number: US-IMMUNOMEDICS, INC.-2020IMMU000470

PATIENT
  Age: 45 Year
  Sex: Female
  Weight: 115 kg

DRUGS (1)
  1. TRODELVY [Suspect]
     Active Substance: SACITUZUMAB GOVITECAN-HZIY
     Indication: BREAST CANCER FEMALE
     Dosage: 520 MG 1 TIME A WEEK
     Route: 042
     Dates: start: 20200702, end: 20200702

REACTIONS (7)
  - Rash pruritic [Recovered/Resolved]
  - Disease progression [Unknown]
  - Decreased appetite [Unknown]
  - Cancer pain [Unknown]
  - Dysgeusia [Unknown]
  - Nausea [Unknown]
  - Rash erythematous [Recovered/Resolved]

NARRATIVE: CASE EVENT DATE: 20200714
